FAERS Safety Report 20796711 (Version 5)
Quarter: 2023Q2

REPORT INFORMATION
  Report Type: Report from Study
  Country: DE (occurrence: DE)
  Receive Date: 20220506
  Receipt Date: 20230630
  Transmission Date: 20230722
  Serious: Yes (Other)
  Sender: FDA-Public Use
  Company Number: DE-NOVARTISPH-NVSC2022DE103827

PATIENT
  Sex: Female
  Weight: 49 kg

DRUGS (1)
  1. MAYZENT [Suspect]
     Active Substance: SIPONIMOD
     Indication: Secondary progressive multiple sclerosis
     Dosage: 1 MG, QD (TITRATION PHASE UP TO A MAINTENANCE DOSAGE)
     Route: 048
     Dates: start: 20210426

REACTIONS (3)
  - Leukopenia [Recovered/Resolved]
  - Neurogenic bladder [Not Recovered/Not Resolved]
  - Lymphopenia [Not Recovered/Not Resolved]

NARRATIVE: CASE EVENT DATE: 20210708
